FAERS Safety Report 8674969 (Version 2)
Quarter: 2013Q1

REPORT INFORMATION
  Report Type: Report from Study
  Country: JP (occurrence: JP)
  Receive Date: 20120720
  Receipt Date: 20130123
  Transmission Date: 20140127
  Serious: Yes (Other)
  Sender: FDA-Public Use
  Company Number: JP-AMGEN-JPNCT2012044816

PATIENT
  Age: 60 Year
  Sex: Female
  Weight: 53 kg

DRUGS (22)
  1. DARBEPOETIN ALFA [Suspect]
     Indication: NEPHROGENIC ANAEMIA
     Dosage: 30 MUG, QD
     Route: 040
     Dates: start: 20110725
  2. DARBEPOETIN ALFA [Suspect]
     Dosage: 30 MUG, QD
     Route: 040
     Dates: start: 20110815, end: 20110815
  3. DARBEPOETIN ALFA [Suspect]
     Dosage: 30 MUG, QD
     Route: 058
     Dates: start: 20110912, end: 20110912
  4. DARBEPOETIN ALFA [Suspect]
     Dosage: 30 MUG, QD
     Route: 040
     Dates: start: 20111024, end: 20111024
  5. DARBEPOETIN ALFA [Suspect]
     Dosage: 30 MUG, Q4WK
     Route: 040
     Dates: start: 20111128, end: 20111226
  6. DARBEPOETIN ALFA [Suspect]
     Dosage: 30 MUG, QD
     Route: 040
     Dates: start: 20120116, end: 20120116
  7. DARBEPOETIN ALFA [Suspect]
     Dosage: 30 MUG, QD
     Route: 058
     Dates: start: 20120202, end: 20120202
  8. DARBEPOETIN ALFA [Suspect]
     Dosage: 30 MUG, Q3WK
     Route: 058
     Dates: start: 20120213, end: 20120305
  9. DARBEPOETIN ALFA [Suspect]
     Dosage: 30 MUG, QD
     Route: 058
     Dates: start: 20120405, end: 20120405
  10. DARBEPOETIN ALFA [Suspect]
     Dosage: 30 MUG, QWK
     Route: 058
     Dates: start: 20120423, end: 20120507
  11. DARBEPOETIN ALFA [Suspect]
     Dosage: 30 MUG, Q3WK
     Route: 058
     Dates: start: 20120518, end: 20120608
  12. DARBEPOETIN ALFA [Suspect]
     Dosage: 40 MUG, QD
     Route: 058
     Dates: start: 20120713
  13. NU-LOTAN [Concomitant]
     Dosage: UNK
     Route: 048
  14. ALOSITOL [Concomitant]
     Indication: HYPERURICAEMIA
     Dosage: UNK
     Route: 048
     Dates: start: 20110912
  15. BAYASPIRIN [Concomitant]
     Indication: GLOMERULONEPHRITIS CHRONIC
     Dosage: UNK
     Route: 048
  16. ATELEC [Concomitant]
     Dosage: UNK
     Route: 048
  17. KREMEZIN [Concomitant]
     Dosage: UNK
     Route: 048
  18. FEBURIC [Concomitant]
     Dosage: UNK
     Route: 048
     Dates: start: 20120105
  19. ADALAT CR [Concomitant]
     Route: 048
  20. TENORMIN [Concomitant]
     Route: 048
  21. JUSO [Concomitant]
     Route: 048
  22. ARGAMATE [Concomitant]
     Route: 048

REACTIONS (2)
  - Hyperuricaemia [Recovered/Resolved]
  - Hypertension [Recovering/Resolving]
